FAERS Safety Report 19077494 (Version 2)
Quarter: 2021Q2

REPORT INFORMATION
  Report Type: Spontaneous
  Country: US (occurrence: US)
  Receive Date: 20210331
  Receipt Date: 20210505
  Transmission Date: 20210717
  Serious: No
  Sender: FDA-Public Use
  Company Number: US-UNITED THERAPEUTICS-UNT-2021-004964

PATIENT
  Age: 69 Year
  Sex: Female
  Weight: 54.88 kg

DRUGS (4)
  1. REMODULIN [Suspect]
     Active Substance: TREPROSTINIL
     Dosage: 0.002 ?G/KG, CONTINUING
     Route: 058
     Dates: start: 202103
  2. REMODULIN [Suspect]
     Active Substance: TREPROSTINIL
     Indication: PULMONARY ARTERIAL HYPERTENSION
     Dosage: UNK, CONTINUING
     Route: 058
     Dates: start: 20210304
  3. OPSUMIT [Concomitant]
     Active Substance: MACITENTAN
     Indication: PRODUCT USED FOR UNKNOWN INDICATION
     Dosage: UNK
     Route: 065
  4. REMODULIN [Suspect]
     Active Substance: TREPROSTINIL
     Dosage: 0.22 ?G/KG, CONTINUING
     Route: 058

REACTIONS (11)
  - Pain in jaw [Unknown]
  - Insomnia [Unknown]
  - Infusion site pain [Unknown]
  - Flushing [Unknown]
  - Decreased appetite [Unknown]
  - Pain in extremity [Unknown]
  - Back pain [Unknown]
  - Device maintenance issue [Unknown]
  - Nausea [Unknown]
  - Neck pain [Unknown]
  - Weight decreased [Unknown]

NARRATIVE: CASE EVENT DATE: 202103
